FAERS Safety Report 8091357-1 (Version None)
Quarter: 2012Q1

REPORT INFORMATION
  Report Type: 
  Country: None (occurrence: None)
  Receive Date: 20120129
  Receipt Date: 20111031
  Transmission Date: 20120608
  Serious: No
  Sender: FDA-Public Use
  Company Number: US-ABBOTT-11P-163-0870545-00

PATIENT
  Sex: Male
  Weight: 119.4 kg

DRUGS (2)
  1. TACROLIMUS [Concomitant]
     Indication: PSORIASIS
     Route: 061
  2. HUMIRA [Suspect]
     Indication: PSORIASIS
     Dates: start: 20110901

REACTIONS (1)
  - PYREXIA [None]
